FAERS Safety Report 6866000-7 (Version None)
Quarter: 2010Q3

REPORT INFORMATION
  Report Type: 
  Country: None (occurrence: None)
  Receive Date: 20100719
  Receipt Date: 20100708
  Transmission Date: 20110219
  Serious: Yes (Other)
  Sender: FDA-Public Use
  Company Number: 2010JP003772

PATIENT
  Age: 59 Year
  Sex: Male

DRUGS (5)
  1. PROGRAF [Suspect]
     Indication: ALLOGENIC BONE MARROW TRANSPLANTATION THERAPY
  2. METHOTREXATE [Concomitant]
  3. PREDNISOLONE [Concomitant]
  4. PREDNISOLONE [Concomitant]
  5. PREDNISOLONE [Concomitant]

REACTIONS (2)
  - CHIMERISM [None]
  - ENGRAFT FAILURE [None]
